FAERS Safety Report 19042846 (Version 5)
Quarter: 2021Q2

REPORT INFORMATION
  Report Type: Spontaneous
  Country: JP (occurrence: JP)
  Receive Date: 20210323
  Receipt Date: 20210624
  Transmission Date: 20210717
  Serious: Yes (Hospitalization, Other)
  Sender: FDA-Public Use
  Company Number: JP-ASTELLAS-2021JP005270

PATIENT
  Age: 78 Year
  Sex: Male

DRUGS (12)
  1. SILODOSIN ASKA [Concomitant]
     Indication: PRODUCT USED FOR UNKNOWN INDICATION
     Dosage: UNK UNK, UNKNOWN FREQ.
     Route: 048
     Dates: end: 20210120
  2. ZOLADEX LA [Concomitant]
     Active Substance: GOSERELIN ACETATE
     Indication: PROSTATE CANCER
     Dosage: UNK UNK, ONCE EVERY THREE MONTHS
     Route: 058
     Dates: start: 20200110
  3. XTANDI [Suspect]
     Active Substance: ENZALUTAMIDE
     Indication: HORMONE-REFRACTORY PROSTATE CANCER
     Route: 048
     Dates: start: 20201006, end: 20210120
  4. ONGLYZA [Concomitant]
     Active Substance: SAXAGLIPTIN HYDROCHLORIDE
     Indication: DIABETES MELLITUS
     Route: 048
  5. XTANDI [Suspect]
     Active Substance: ENZALUTAMIDE
     Dosage: 80 MG, ONCE DAILY, AFTER BREAKFAST
     Route: 048
     Dates: start: 20210324
  6. URIEF [Concomitant]
     Active Substance: SILODOSIN
     Indication: LOWER URINARY TRACT SYMPTOMS
     Route: 048
     Dates: start: 20191217
  7. MAGMITT [Concomitant]
     Active Substance: MAGNESIUM OXIDE
     Dosage: 330 MG, TWICE DAILY, AFTER BREAKFAST AND DINNER
     Route: 048
     Dates: start: 20210427
  8. MAGMITT [Concomitant]
     Active Substance: MAGNESIUM OXIDE
     Indication: CONSTIPATION
     Route: 048
     Dates: start: 20191217
  9. MICARDIS [Concomitant]
     Active Substance: TELMISARTAN
     Indication: HYPERTENSION
     Route: 048
  10. HARNAL [Concomitant]
     Active Substance: TAMSULOSIN HYDROCHLORIDE
     Indication: DYSURIA
     Dosage: UNK UNK, UNKNOWN FREQ.
     Route: 065
  11. URIEF [Concomitant]
     Active Substance: SILODOSIN
     Dosage: 4 MG, TWICE DAILY, AFTER BREAKFAST AND DINNER
     Route: 048
     Dates: start: 20210427
  12. MAGMITT [Concomitant]
     Active Substance: MAGNESIUM OXIDE
     Dosage: 330 MG, TWICE DAILY, AFTER BREAKFAST AND DINNER
     Route: 048
     Dates: start: 20210323

REACTIONS (4)
  - Dehydration [Recovered/Resolved]
  - Rathke^s cleft cyst [Not Recovered/Not Resolved]
  - Rhabdomyolysis [Recovered/Resolved]
  - Urinary tract infection [Recovered/Resolved]

NARRATIVE: CASE EVENT DATE: 20210121
